FAERS Safety Report 23884301 (Version 1)
Quarter: 2024Q2

REPORT INFORMATION
  Report Type: Spontaneous
  Country: US (occurrence: None)
  Receive Date: 20240522
  Receipt Date: 20240522
  Transmission Date: 20240716
  Serious: Yes (Hospitalization)
  Sender: FDA-Public Use
  Company Number: None

PATIENT
  Sex: Female
  Weight: 78 kg

DRUGS (2)
  1. CISPLATIN [Suspect]
     Active Substance: CISPLATIN
  2. GEMCITABINE HYDROCHLORIDE [Suspect]
     Active Substance: GEMCITABINE HYDROCHLORIDE

REACTIONS (6)
  - Acute kidney injury [None]
  - Mouth ulceration [None]
  - Abdominal pain upper [None]
  - Nausea [None]
  - Constipation [None]
  - Osteopenia [None]

NARRATIVE: CASE EVENT DATE: 20240516
